FAERS Safety Report 8555567-9 (Version None)
Quarter: 2012Q3

REPORT INFORMATION
  Report Type: 
  Country: None (occurrence: None)
  Receive Date: 20120731
  Receipt Date: 20120420
  Transmission Date: 20120928
  Serious: No
  Sender: FDA-Public Use
  Company Number: US-ASTRAZENECA-2011SE01529

PATIENT
  Age: 50 Year
  Sex: Male

DRUGS (15)
  1. SEROQUEL XR [Suspect]
     Indication: DEPRESSION
     Route: 048
     Dates: start: 20101209
  2. SEROQUEL XR [Suspect]
     Indication: MOOD SWINGS
     Route: 048
     Dates: start: 20101209
  3. SEROQUEL XR [Suspect]
     Route: 048
  4. LITHIUM CARBONATE [Concomitant]
  5. SEROQUEL XR [Suspect]
     Route: 048
  6. SEROQUEL XR [Suspect]
     Route: 048
  7. SEROQUEL XR [Suspect]
     Route: 048
  8. SEROQUEL XR [Suspect]
     Route: 048
  9. SEROQUEL XR [Suspect]
     Indication: OBSESSIVE-COMPULSIVE DISORDER
     Route: 048
     Dates: start: 20101209
  10. XANAX [Concomitant]
     Indication: ANXIETY
  11. SEROQUEL XR [Suspect]
     Route: 048
  12. SEROQUEL XR [Suspect]
     Route: 048
  13. SEROQUEL XR [Suspect]
     Route: 048
  14. SEROQUEL XR [Suspect]
     Indication: ANXIETY
     Route: 048
     Dates: start: 20101209
  15. PRIMIDONE [Concomitant]

REACTIONS (5)
  - CONFUSIONAL STATE [None]
  - SEBACEOUS GLANDS OVERACTIVITY [None]
  - MANIA [None]
  - SEBORRHOEA [None]
  - INTENTIONAL DRUG MISUSE [None]
